FAERS Safety Report 6322189-X (Version None)
Quarter: 2009Q3

REPORT INFORMATION
  Report Type: 
  Country: None (occurrence: None)
  Receive Date: 20090814
  Receipt Date: 20090429
  Transmission Date: 20100115
  Serious: Yes (Other)
  Sender: FDA-Public Use
  Company Number: 59709

PATIENT
  Age: 71 Year
  Sex: Female
  Weight: 59.4212 kg

DRUGS (2)
  1. ETOPOSIDE [Suspect]
     Indication: HEPATIC NEOPLASM MALIGNANT
     Dosage: 160MG, ONCE IV
     Route: 042
     Dates: start: 20090429
  2. ETOPOSIDE [Suspect]
     Indication: LUNG NEOPLASM MALIGNANT
     Dosage: 160MG, ONCE IV
     Route: 042
     Dates: start: 20090429

REACTIONS (3)
  - BACK PAIN [None]
  - DYSPNOEA [None]
  - ERYTHEMA [None]
